FAERS Safety Report 6728351-6 (Version None)
Quarter: 2010Q2

REPORT INFORMATION
  Report Type: 
  Country: None (occurrence: None)
  Receive Date: 20100517
  Receipt Date: 20100507
  Transmission Date: 20101027
  Serious: Yes (Other)
  Sender: FDA-Public Use
  Company Number: NL-TEVA-234332ISR

PATIENT
  Sex: Female
  Weight: 22 kg

DRUGS (6)
  1. BACTRIM [Suspect]
     Indication: CYSTITIS
     Dosage: UNIT: 240MG/5ML
  2. TRIMETHOPRIM [Suspect]
     Indication: CYSTITIS
  3. AMOXICILLIN [Suspect]
     Indication: CYSTITIS
     Dosage: UNIT DOSE: 250MG/5ML
  4. NITROFURANTOIN [Suspect]
     Indication: CYSTITIS
  5. AUGMENTIN '125' [Suspect]
     Indication: CYSTITIS
     Dosage: UNIT DOSE: 25 MG/5ML
  6. CIPROFLOXACIN [Suspect]
     Indication: CYSTITIS

REACTIONS (1)
  - TOOTH DISCOLOURATION [None]
